APPROVED DRUG PRODUCT: METRONIDAZOLE
Active Ingredient: METRONIDAZOLE
Strength: 500MG
Dosage Form/Route: TABLET;ORAL
Application: A206560 | Product #002 | TE Code: AB
Applicant: CADILA HEALTHCARE LTD
Approved: Nov 16, 2016 | RLD: No | RS: No | Type: RX